FAERS Safety Report 15706630 (Version 1)
Quarter: 2018Q4

REPORT INFORMATION
  Report Type: Spontaneous
  Country: RU (occurrence: RU)
  Receive Date: 20181210
  Receipt Date: 20181210
  Transmission Date: 20190205
  Serious: Yes (Other)
  Sender: FDA-Public Use
  Company Number: PHHY2018RU173048

PATIENT
  Age: 1 Year
  Sex: Male

DRUGS (3)
  1. ACZ885 [Suspect]
     Active Substance: CANAKINUMAB
     Indication: CRYOPYRIN ASSOCIATED PERIODIC SYNDROME
     Dosage: 4 MG/KG EVERY 4 WEEKS
     Route: 058
  2. DEXAMETHASONE. [Concomitant]
     Active Substance: DEXAMETHASONE
     Indication: CRYOPYRIN ASSOCIATED PERIODIC SYNDROME
     Dosage: 20 MG/M2, QD
     Route: 065
  3. PREDNISOLONE. [Concomitant]
     Active Substance: PREDNISOLONE
     Indication: CRYOPYRIN ASSOCIATED PERIODIC SYNDROME
     Dosage: 25 MG, QD
     Route: 048

REACTIONS (1)
  - Haemophagocytic lymphohistiocytosis [Recovering/Resolving]
